FAERS Safety Report 8181106-0 (Version None)
Quarter: 2012Q1

REPORT INFORMATION
  Report Type: 
  Country: None (occurrence: None)
  Receive Date: 20120126
  Receipt Date: 20111221
  Transmission Date: 20120608
  Serious: Yes (Other)
  Sender: FDA-Public Use
  Company Number: PHEH2011US012662

PATIENT
  Age: 69 Year
  Sex: Female

DRUGS (1)
  1. AFINITOR [Suspect]
     Dosage: 10 MG, DAILY, ORAL 5 MG, UNK
     Route: 048

REACTIONS (2)
  - DRUG INTOLERANCE [None]
  - NEUTROPENIA [None]
